FAERS Safety Report 8988278 (Version 1)
Quarter: 2012Q4

REPORT INFORMATION
  Report Type: Report from Study
  Country: JP (occurrence: JP)
  Receive Date: 20121227
  Receipt Date: 20121227
  Transmission Date: 20130627
  Serious: Yes (Hospitalization)
  Sender: FDA-Public Use
  Company Number: JP-JNJFOC-20121211241

PATIENT
  Age: 82 Year
  Sex: Male

DRUGS (3)
  1. REMINYL [Suspect]
     Indication: DEMENTIA ALZHEIMER^S TYPE
     Route: 048
     Dates: start: 20120406, end: 20120425
  2. NITOROL R [Concomitant]
     Indication: ANGINA PECTORIS
     Route: 048
  3. AMLODIN OD [Concomitant]
     Indication: HYPERTENSION
     Route: 048

REACTIONS (2)
  - Pneumonia [Recovered/Resolved]
  - Decreased appetite [Recovered/Resolved]
